FAERS Safety Report 21382545 (Version 1)
Quarter: 2022Q3

REPORT INFORMATION
  Report Type: Report from Study
  Country: NL (occurrence: None)
  Receive Date: 20220927
  Receipt Date: 20220927
  Transmission Date: 20221027
  Serious: Yes (Other)
  Sender: FDA-Public Use
  Company Number: NL-ROCHE-3182189

PATIENT
  Sex: Female

DRUGS (6)
  1. BEVACIZUMAB [Suspect]
     Active Substance: BEVACIZUMAB
     Indication: Triple negative breast cancer
     Dosage: ON 02/NOV/2015, RECENTLY RECEIVED BEVACIZUMAB
     Route: 042
     Dates: start: 20150713
  2. PACLITAXEL [Suspect]
     Active Substance: PACLITAXEL
     Indication: Triple negative breast cancer
     Dosage: ON 06/OCT/2015 RECEIVED RECENT DOSE
     Route: 042
     Dates: start: 20150713
  3. ACETAMINOPHEN [Concomitant]
     Active Substance: ACETAMINOPHEN
     Dates: start: 20150526
  4. OXYCODONE [Concomitant]
     Active Substance: OXYCODONE
     Dates: start: 20151006
  5. DICLOFENAC;MISOPROSTOL [Concomitant]
     Dosage: 150/400MICROGRAM
     Dates: start: 20151028
  6. MAGNESIUM HYDROXIDE [Concomitant]
     Active Substance: MAGNESIUM HYDROXIDE
     Dosage: 4344MG
     Dates: start: 20150601

REACTIONS (1)
  - Paraesthesia [Recovered/Resolved]

NARRATIVE: CASE EVENT DATE: 20151117
